FAERS Safety Report 6550565-9 (Version None)
Quarter: 2010Q1

REPORT INFORMATION
  Report Type: 
  Country: None (occurrence: None)
  Receive Date: 20100125
  Receipt Date: 20100113
  Transmission Date: 20100710
  Serious: Yes (Other)
  Sender: FDA-Public Use
  Company Number: US-PFIZER INC-2010008475

PATIENT
  Sex: Female
  Weight: 149.7 kg

DRUGS (2)
  1. ZOLOFT [Suspect]
     Indication: DEPRESSION
     Dosage: 50 MG, 1X/DAY
     Dates: start: 20091001
  2. ADIPEX [Suspect]
     Indication: WEIGHT DECREASED
     Dosage: UNK

REACTIONS (1)
  - URINE OUTPUT DECREASED [None]
